FAERS Safety Report 7736310-X (Version None)
Quarter: 2011Q3

REPORT INFORMATION
  Report Type: 
  Country: None (occurrence: None)
  Receive Date: 20110817
  Receipt Date: 20101220
  Transmission Date: 20111222
  Serious: No
  Sender: FDA-Public Use
  Company Number: 20097415

PATIENT
  Sex: Female

DRUGS (1)
  1. LIORESAL [Suspect]
     Indication: MUSCLE SPASTICITY
     Dosage: 30 MCG, DAILY, INTRATHECAL -SEE B5
     Route: 037

REACTIONS (6)
  - PAIN [None]
  - DRUG WITHDRAWAL SYNDROME [None]
  - HYPERTONIA [None]
  - PRURITUS [None]
  - DRUG INEFFECTIVE [None]
  - MUSCLE TIGHTNESS [None]
